FAERS Safety Report 5396824-7 (Version None)
Quarter: 2007Q3

REPORT INFORMATION
  Report Type: 
  Country: None (occurrence: None)
  Receive Date: 20070725
  Receipt Date: 20061011
  Transmission Date: 20080115
  Serious: No
  Sender: FDA-Public Use
  Company Number: US-AMGEN-KDL196677

PATIENT
  Sex: Male
  Weight: 57.2 kg

DRUGS (7)
  1. PROCRIT [Suspect]
     Indication: RENAL FAILURE CHRONIC
     Route: 058
     Dates: start: 20060831, end: 20061002
  2. NORVASC [Concomitant]
  3. CLONIDINE HCL [Concomitant]
  4. ATENOLOL [Concomitant]
  5. BENICAR [Concomitant]
  6. PRILOSEC [Concomitant]
     Dates: start: 20050101
  7. ASPIRIN [Concomitant]
     Dates: start: 20030101

REACTIONS (4)
  - EYELID OEDEMA [None]
  - PRURITUS [None]
  - SWELLING FACE [None]
  - SWOLLEN TONGUE [None]
